FAERS Safety Report 18314851 (Version 2)
Quarter: 2020Q4

REPORT INFORMATION
  Report Type: Spontaneous
  Country: DE (occurrence: DE)
  Receive Date: 20200926
  Receipt Date: 20201006
  Transmission Date: 20210113
  Serious: Yes (Hospitalization)
  Sender: FDA-Public Use
  Company Number: DE-ABBVIE-20K-062-3583166-00

PATIENT
  Age: 76 Year
  Sex: Female
  Weight: 48 kg

DRUGS (18)
  1. VENETOCLAX. [Suspect]
     Active Substance: VENETOCLAX
     Route: 048
     Dates: start: 20200916
  2. LATANOPROST. [Concomitant]
     Active Substance: LATANOPROST
     Indication: PRODUCT USED FOR UNKNOWN INDICATION
     Dosage: 50 MCG/ML
  3. VIDAZA [Suspect]
     Active Substance: AZACITIDINE
     Indication: PRODUCT USED FOR UNKNOWN INDICATION
     Dosage: 75 MG/M2 107 MG AT D2-D7
     Route: 065
     Dates: start: 20200817, end: 2020
  4. VIDAZA [Suspect]
     Active Substance: AZACITIDINE
     Route: 065
     Dates: start: 20200915, end: 20200915
  5. VENETOCLAX. [Suspect]
     Active Substance: VENETOCLAX
     Indication: ACUTE MYELOID LEUKAEMIA
     Route: 048
     Dates: start: 20200914, end: 20200914
  6. VIDAZA [Suspect]
     Active Substance: AZACITIDINE
     Dosage: D2-D7
     Route: 065
     Dates: start: 202009
  7. PANTOPRAZOL PUREN [Concomitant]
     Active Substance: PANTOPRAZOLE SODIUM
     Indication: PRODUCT USED FOR UNKNOWN INDICATION
  8. CEFUROXIM-RATIOPHARM [Concomitant]
     Active Substance: CEFUROXIME
     Indication: PROPHYLAXIS
     Dates: start: 202009
  9. VENETOCLAX. [Suspect]
     Active Substance: VENETOCLAX
     Route: 048
     Dates: start: 20200915, end: 20200915
  10. DRONABINOL. [Concomitant]
     Active Substance: DRONABINOL
     Indication: PRODUCT USED FOR UNKNOWN INDICATION
     Dosage: DROPS 1G/100ML, ETHANOL SOLUTION 10 MG/ML, INHALATVE 20 ML?2-2-2-0
  11. L-THYROXIN HENNING [Concomitant]
     Active Substance: LEVOTHYROXINE SODIUM
     Indication: THYROID HORMONE REPLACEMENT THERAPY
  12. CIPROFLOXACIN HYDROCHLORIDE. [Concomitant]
     Active Substance: CIPROFLOXACIN HYDROCHLORIDE
     Indication: PRODUCT USED FOR UNKNOWN INDICATION
     Dates: start: 2020
  13. COTRIMOXAZOL AL [Concomitant]
     Active Substance: SULFAMETHOXAZOLE\TRIMETHOPRIM
     Indication: PRODUCT USED FOR UNKNOWN INDICATION
     Dosage: SULFAMETHOXAZOLE 400 MG / TRIMETHOPRIM 80 MG
  14. POSACONAZOLE RATIOPHARM [Concomitant]
     Indication: PRODUCT USED FOR UNKNOWN INDICATION
     Dates: start: 2020
  15. FRESUBIN ENERGY DRINK [Concomitant]
     Active Substance: CARBOHYDRATES\FATTY ACIDS\MINERALS\PROTEIN\VITAMINS
     Indication: PRODUCT USED FOR UNKNOWN INDICATION
     Dosage: CHOCOLATE TASTE IN DRINK BOTTLE
  16. VIDAZA [Suspect]
     Active Substance: AZACITIDINE
     Route: 065
     Dates: start: 20200914, end: 20200914
  17. VIDAZA [Suspect]
     Active Substance: AZACITIDINE
     Dosage: D2-D7
     Route: 065
     Dates: start: 20200916, end: 202009
  18. PANTOPRAZOL PUREN [Concomitant]
     Active Substance: PANTOPRAZOLE SODIUM

REACTIONS (14)
  - General physical health deterioration [Unknown]
  - Body temperature increased [Unknown]
  - Weight abnormal [Unknown]
  - Off label use [Unknown]
  - Back disorder [Unknown]
  - Pyrexia [Recovered/Resolved]
  - Abnormal faeces [Recovered/Resolved]
  - Neutropenia [Recovered/Resolved]
  - Nutritional condition abnormal [Unknown]
  - Gingival discolouration [Unknown]
  - Gingival swelling [Unknown]
  - Back pain [Recovered/Resolved]
  - Chills [Recovered/Resolved]
  - Loss of personal independence in daily activities [Unknown]

NARRATIVE: CASE EVENT DATE: 202009
